FAERS Safety Report 16877150 (Version 2)
Quarter: 2019Q4

REPORT INFORMATION
  Report Type: Spontaneous
  Country: US (occurrence: US)
  Receive Date: 20191002
  Receipt Date: 20191127
  Transmission Date: 20200122
  Serious: Yes (Other)
  Sender: FDA-Public Use
  Company Number: US-PRINSTON PHARMACEUTICAL INC.-2019PRN00852

PATIENT
  Sex: Female

DRUGS (1)
  1. VALSARTAN. [Suspect]
     Active Substance: VALSARTAN

REACTIONS (7)
  - Pulmonary mass [Unknown]
  - Uterine leiomyoma [Unknown]
  - Hepatic failure [Unknown]
  - Pneumothorax [Unknown]
  - Renal failure [Unknown]
  - Respiratory disorder [Unknown]
  - Recalled product administered [Unknown]
